FAERS Safety Report 16804418 (Version 1)
Quarter: 2019Q4

REPORT INFORMATION
  Report Type: Spontaneous
  Country: US (occurrence: US)
  Receive Date: 20190912
  Receipt Date: 20190912
  Transmission Date: 20200122
  Serious: Yes (Hospitalization)
  Sender: FDA-Public Use
  Company Number: None

PATIENT
  Age: 49 Year
  Sex: Female
  Weight: 102.06 kg

DRUGS (1)
  1. GENERIC VIVELLE-DOT [Suspect]
     Active Substance: ESTRADIOL

REACTIONS (2)
  - Therapeutic response changed [None]
  - Seizure [None]
